FAERS Safety Report 18193476 (Version 3)
Quarter: 2020Q4

REPORT INFORMATION
  Report Type: Spontaneous
  Country: DE (occurrence: DE)
  Receive Date: 20200825
  Receipt Date: 20201006
  Transmission Date: 20210113
  Serious: Yes (Death, Life-Threatening, Hospitalization, Other)
  Sender: FDA-Public Use
  Company Number: DE-BAXTER-2020BAX016753

PATIENT
  Sex: Male

DRUGS (7)
  1. PHOSPHATE [Suspect]
     Active Substance: UNSPECIFIED INGREDIENT
     Indication: PARENTERAL NUTRITION
     Route: 042
  2. POTASSIUM [Suspect]
     Active Substance: POTASSIUM
     Indication: PARENTERAL NUTRITION
     Route: 042
  3. MAGNESIUM [Suspect]
     Active Substance: MAGNESIUM
     Indication: PARENTERAL NUTRITION
     Route: 042
  4. SODIUM [Suspect]
     Active Substance: SODIUM
     Indication: PARENTERAL NUTRITION
     Route: 042
  5. CALCIUM [Suspect]
     Active Substance: CALCIUM
     Indication: PARENTERAL NUTRITION
     Route: 042
  6. CLINOLEIC 20 % [Suspect]
     Active Substance: OLIVE OIL\SOYBEAN OIL
     Indication: PARENTERAL NUTRITION
     Route: 042
     Dates: start: 20200810
  7. GLUCOSE 50  BAXTER [Suspect]
     Active Substance: DEXTROSE
     Indication: PARENTERAL NUTRITION
     Route: 042

REACTIONS (5)
  - Product contamination microbial [Fatal]
  - Acinetobacter sepsis [Fatal]
  - Back pain [Unknown]
  - General physical health deterioration [Unknown]
  - Headache [Unknown]
